FAERS Safety Report 23863811 (Version 1)
Quarter: 2024Q2

REPORT INFORMATION
  Report Type: Other
  Country: IN (occurrence: None)
  Receive Date: 20240516
  Receipt Date: 20240516
  Transmission Date: 20240716
  Serious: Yes (Death)
  Sender: FDA-Public Use
  Company Number: IN-ROCHE-3562840

PATIENT
  Age: 12 Year
  Sex: Male

DRUGS (1)
  1. GAZYVA [Suspect]
     Active Substance: OBINUTUZUMAB
     Indication: Acute lymphocytic leukaemia refractory
     Route: 042
     Dates: start: 20240215

REACTIONS (1)
  - Death [Fatal]
